FAERS Safety Report 8302123-3 (Version None)
Quarter: 2012Q2

REPORT INFORMATION
  Report Type: 
  Country: None (occurrence: None)
  Receive Date: 20120420
  Receipt Date: 20120413
  Transmission Date: 20120825
  Serious: Yes (Other)
  Sender: FDA-Public Use
  Company Number: US-JNJFOC-20120407543

PATIENT
  Sex: Male

DRUGS (2)
  1. CLADRIBINE [Suspect]
     Indication: LANGERHANS' CELL HISTIOCYTOSIS
     Route: 065
  2. CYTARABINE [Suspect]
     Indication: LANGERHANS' CELL HISTIOCYTOSIS
     Route: 065

REACTIONS (2)
  - PANCYTOPENIA [None]
  - CAECITIS [None]
